FAERS Safety Report 14585408 (Version 2)
Quarter: 2018Q2

REPORT INFORMATION
  Report Type: Spontaneous
  Country: JP (occurrence: JP)
  Receive Date: 20180301
  Receipt Date: 20180508
  Transmission Date: 20180711
  Serious: Yes (Other)
  Sender: FDA-Public Use
  Company Number: JP-ROCHE-2080519

PATIENT
  Age: 77 Year
  Sex: Female
  Weight: 42 kg

DRUGS (6)
  1. CALONAL [Concomitant]
     Active Substance: ACETAMINOPHEN
     Dosage: DOSAGE IS UNCERTAIN.
     Route: 048
     Dates: start: 20180130
  2. CISPLATIN. [Concomitant]
     Active Substance: CISPLATIN
     Dosage: DOSAGE IS UNCERTAIN.
     Route: 065
     Dates: start: 20180130
  3. TAMIFLU [Suspect]
     Active Substance: OSELTAMIVIR PHOSPHATE
     Indication: ANTIVIRAL PROPHYLAXIS
     Route: 048
     Dates: start: 20180204, end: 20180210
  4. NEUTROGIN [Concomitant]
     Active Substance: LENOGRASTIM
     Dosage: DOSAGE IS UNCERTAIN.
     Route: 065
     Dates: start: 20180209
  5. AZILVA [Concomitant]
     Active Substance: AZILSARTAN KAMEDOXOMIL
     Dosage: DOSAGE IS UNCERTAIN.
     Route: 048
     Dates: start: 20180129
  6. GEMCITABINE [Concomitant]
     Active Substance: GEMCITABINE\GEMCITABINE HYDROCHLORIDE
     Dosage: DOSAGE IS UNCERTAIN.
     Route: 065

REACTIONS (1)
  - Abnormal behaviour [Unknown]

NARRATIVE: CASE EVENT DATE: 20180208
